FAERS Safety Report 4545347-3 (Version None)
Quarter: 2005Q1

REPORT INFORMATION
  Report Type: 
  Country: None (occurrence: None)
  Receive Date: 20050103
  Receipt Date: 20041222
  Transmission Date: 20050727
  Serious: Yes (Death, Hospitalization)
  Sender: FDA-Public Use
  Company Number: A04200401197

PATIENT
  Age: 69 Year
  Sex: Male

DRUGS (3)
  1. ELOXATIN [Suspect]
     Route: 041
     Dates: start: 20041201, end: 20041201
  2. FLUOROURACIL [Suspect]
     Route: 042
     Dates: start: 20041201, end: 20041201
  3. LEUCOVORIN CALCIUM [Suspect]
     Route: 042
     Dates: start: 20041201, end: 20041201

REACTIONS (4)
  - HEPATIC NECROSIS [None]
  - ISCHAEMIC HEPATITIS [None]
  - MULTI-ORGAN FAILURE [None]
  - MYOCARDIAL INFARCTION [None]
